FAERS Safety Report 21617715 (Version 1)
Quarter: 2022Q4

REPORT INFORMATION
  Report Type: Spontaneous
  Country: PL (occurrence: PL)
  Receive Date: 20221119
  Receipt Date: 20221119
  Transmission Date: 20230112
  Serious: Yes (Other)
  Sender: FDA-Public Use
  Company Number: PL-Merck Healthcare KGaA-9179402

PATIENT
  Age: 50 Year
  Sex: Male
  Weight: 76 kg

DRUGS (13)
  1. IRINOTECAN [Suspect]
     Active Substance: IRINOTECAN
     Indication: Colorectal cancer metastatic
     Dosage: 180 MILLIGRAM/SQ. METER,320 MG
     Route: 042
     Dates: start: 20200227, end: 20200709
  2. IRINOTECAN [Suspect]
     Active Substance: IRINOTECAN
     Dosage: 180 MILLIGRAM/SQ. METER,320 MG
     Route: 042
     Dates: start: 20200810
  3. IRINOTECAN [Suspect]
     Active Substance: IRINOTECAN
     Dosage: 180 MILLIGRAM/SQ. METER,320 MG
     Route: 042
     Dates: start: 20200907
  4. FLUOROURACIL [Suspect]
     Active Substance: FLUOROURACIL
     Indication: Colorectal cancer metastatic
     Dosage: 1000 MILLIGRAM/SQ. METER,1780 MG
     Route: 042
     Dates: start: 20200907
  5. FLUOROURACIL [Suspect]
     Active Substance: FLUOROURACIL
     Dosage: 1000 MILLIGRAM/SQ. METER,1780 MG
     Route: 042
     Dates: start: 20200227, end: 20200709
  6. FLUOROURACIL [Suspect]
     Active Substance: FLUOROURACIL
     Dosage: 1000 MILLIGRAM/SQ. METER,1780 MG
     Route: 042
     Dates: start: 20200810
  7. CETUXIMAB [Suspect]
     Active Substance: CETUXIMAB
     Indication: Colorectal cancer metastatic
     Dosage: 500 MILLIGRAM/SQ. METER
     Route: 042
     Dates: start: 20200810
  8. CETUXIMAB [Suspect]
     Active Substance: CETUXIMAB
     Dosage: 500 MILLIGRAM/SQ. METER
     Route: 042
     Dates: start: 20200709
  9. CETUXIMAB [Suspect]
     Active Substance: CETUXIMAB
     Dosage: 500 MILLIGRAM/SQ. METER
     Route: 042
     Dates: start: 20200227, end: 20200709
  10. CETUXIMAB [Suspect]
     Active Substance: CETUXIMAB
     Dosage: 500 MILLIGRAM/SQ. METER
     Route: 042
     Dates: start: 20200907
  11. LEUCOVORIN [Suspect]
     Active Substance: LEUCOVORIN
     Indication: Colorectal cancer metastatic
     Dosage: 100 MILLIGRAM/SQ. METER,178 MG
     Route: 042
     Dates: start: 20200907
  12. LEUCOVORIN [Suspect]
     Active Substance: LEUCOVORIN
     Dosage: 100 MILLIGRAM/SQ. METER,178 MG
     Route: 042
     Dates: start: 20200227, end: 20200709
  13. LEUCOVORIN [Suspect]
     Active Substance: LEUCOVORIN
     Dosage: 100 MILLIGRAM/SQ. METER,178 MG
     Route: 042
     Dates: start: 20200810

REACTIONS (2)
  - Skin toxicity [Not Recovered/Not Resolved]
  - Off label use [Unknown]

NARRATIVE: CASE EVENT DATE: 20200727
